FAERS Safety Report 14179375 (Version 1)
Quarter: 2017Q4

REPORT INFORMATION
  Report Type: Spontaneous
  Country: GB (occurrence: GB)
  Receive Date: 20171110
  Receipt Date: 20171110
  Transmission Date: 20180321
  Serious: Yes (Other)
  Sender: FDA-Public Use
  Company Number: GB-PFIZER INC-2017478709

PATIENT
  Age: 29 Year
  Sex: Male
  Weight: 72 kg

DRUGS (3)
  1. CHAMPIX [Suspect]
     Active Substance: VARENICLINE TARTRATE
     Indication: SMOKING CESSATION THERAPY
     Dosage: 2 DF, 1X/DAY
     Route: 048
     Dates: start: 20170901, end: 20170915
  2. FLUOXETINE [Concomitant]
     Active Substance: FLUOXETINE HYDROCHLORIDE
     Dosage: UNK
  3. TAMOXIFEN CITRATE. [Concomitant]
     Active Substance: TAMOXIFEN CITRATE
     Dosage: UNK

REACTIONS (9)
  - Depression [Recovering/Resolving]
  - Loss of dreaming [Unknown]
  - Mental disorder [Recovered/Resolved with Sequelae]
  - Hallucination, auditory [Recovered/Resolved]
  - Anxiety [Recovering/Resolving]
  - Catatonia [Unknown]
  - Hallucination, visual [Recovered/Resolved]
  - Insomnia [Unknown]
  - Seizure [Recovered/Resolved]

NARRATIVE: CASE EVENT DATE: 20170910
